FAERS Safety Report 10664271 (Version 1)
Quarter: 2014Q4

REPORT INFORMATION
  Report Type: Spontaneous
  Country: US (occurrence: None)
  Receive Date: 20141218
  Receipt Date: 20141218
  Transmission Date: 20150529
  Serious: Yes (Other)
  Sender: FDA-Public Use
  Company Number: None

PATIENT
  Age: 66 Year
  Sex: Male

DRUGS (2)
  1. OZURDEX [Suspect]
     Active Substance: DEXAMETHASONE
     Indication: MACULAR OEDEMA
     Dosage: 0.7 MG INTRAVITREAL
     Dates: start: 20140226
  2. OZURDEX [Suspect]
     Active Substance: DEXAMETHASONE
     Indication: MACULAR FIBROSIS
     Dosage: 0.7 MG INTRAVITREAL
     Dates: start: 20140226

REACTIONS (1)
  - Product quality issue [None]

NARRATIVE: CASE EVENT DATE: 20140226
